FAERS Safety Report 22071776 (Version 1)
Quarter: 2023Q1

REPORT INFORMATION
  Report Type: Report from Study
  Country: CZ (occurrence: CZ)
  Receive Date: 20230307
  Receipt Date: 20230307
  Transmission Date: 20230418
  Serious: Yes (Other)
  Sender: FDA-Public Use
  Company Number: CZ-002147023-NVSC2023CZ043114

PATIENT

DRUGS (1)
  1. RUXOLITINIB [Suspect]
     Active Substance: RUXOLITINIB
     Indication: Drug therapy
     Dosage: 20 MG, BID
     Route: 065
     Dates: start: 20210607, end: 20220627

REACTIONS (3)
  - Toxicity to various agents [Unknown]
  - Thrombocytopenia [Unknown]
  - Drug intolerance [Unknown]
